FAERS Safety Report 15261133 (Version 1)
Quarter: 2018Q3

REPORT INFORMATION
  Report Type: Spontaneous
  Country: US (occurrence: US)
  Receive Date: 20180809
  Receipt Date: 20180809
  Transmission Date: 20181010
  Serious: No
  Sender: FDA-Public Use
  Company Number: PHEH2018US032274

PATIENT
  Age: 24 Year
  Sex: Female

DRUGS (1)
  1. JADENU [Suspect]
     Active Substance: DEFERASIROX
     Indication: SICKLE CELL DISEASE
     Dosage: 900 MG, QD
     Route: 048

REACTIONS (1)
  - Vomiting [Not Recovered/Not Resolved]
